FAERS Safety Report 24214015 (Version 1)
Quarter: 2024Q3

REPORT INFORMATION
  Report Type: Spontaneous
  Country: US (occurrence: US)
  Receive Date: 20240815
  Receipt Date: 20240815
  Transmission Date: 20241017
  Serious: Yes (Hospitalization, Other)
  Sender: BIOGEN
  Company Number: US-BIOGEN-2023BI01239373

PATIENT
  Age: 24 Year
  Sex: Female
  Weight: 74.3 kg

DRUGS (4)
  1. SKYCLARYS [Suspect]
     Active Substance: OMAVELOXOLONE
     Indication: Friedreich^s ataxia
     Route: 050
     Dates: start: 20230704, end: 20230714
  2. FLEXERIL [Concomitant]
     Active Substance: CYCLOBENZAPRINE HYDROCHLORIDE
     Indication: Muscle spasms
     Dosage: AT BEDTIME
     Route: 050
  3. MOBIC [Concomitant]
     Active Substance: MELOXICAM
     Indication: Pain
     Dosage: WITH FOOD, MAY INCREASE TO 2 TABLETS DAILY AS NEEDED FOR PAIN OR INFLAMMATION
     Route: 050
  4. NEURONTIN [Concomitant]
     Active Substance: GABAPENTIN
     Indication: Product used for unknown indication
     Route: 050

REACTIONS (8)
  - Urticaria [Recovered/Resolved]
  - Tachycardia [Recovered/Resolved]
  - Peripheral swelling [Recovered/Resolved]
  - Swelling [Recovered/Resolved]
  - Troponin increased [Recovered/Resolved]
  - Drug hypersensitivity [Recovered/Resolved]
  - Fibrin D dimer increased [Unknown]
  - Aspartate aminotransferase increased [Unknown]

NARRATIVE: CASE EVENT DATE: 20230704
